FAERS Safety Report 7742421-5 (Version None)
Quarter: 2011Q3

REPORT INFORMATION
  Report Type: 
  Country: None (occurrence: None)
  Receive Date: 20110907
  Receipt Date: 20110907
  Transmission Date: 20111222
  Serious: Yes (Hospitalization)
  Sender: FDA-Public Use
  Company Number: None

PATIENT
  Sex: Male
  Weight: 9.5 kg

DRUGS (1)
  1. FENTANYL [Suspect]
     Indication: TONGUE TIE OPERATION
     Dosage: 10 MCG IV X1 X1 IV
     Route: 042
     Dates: start: 20110830

REACTIONS (1)
  - RESPIRATORY DISORDER [None]
